FAERS Safety Report 22314916 (Version 1)
Quarter: 2023Q2

REPORT INFORMATION
  Report Type: Spontaneous
  Country: US (occurrence: None)
  Receive Date: 20230511
  Receipt Date: 20230511
  Transmission Date: 20230722
  Serious: No
  Sender: FDA-Public Use
  Company Number: None

PATIENT
  Age: 74 Year
  Sex: Female
  Weight: 63.9 kg

DRUGS (1)
  1. READI-CAT 2 [Suspect]
     Active Substance: BARIUM SULFATE
     Indication: Computerised tomogram
     Route: 048
     Dates: start: 20230511, end: 20230511

REACTIONS (3)
  - Abdominal pain [None]
  - Chest pain [None]
  - Contrast media reaction [None]

NARRATIVE: CASE EVENT DATE: 20230511
